FAERS Safety Report 4311093-4 (Version None)
Quarter: 2004Q1

REPORT INFORMATION
  Report Type: 
  Country: None (occurrence: None)
  Receive Date: 20040302
  Receipt Date: 20040302
  Transmission Date: 20041129
  Serious: Yes (Hospitalization)
  Sender: FDA-Public Use
  Company Number: None

PATIENT
  Age: 68 Year
  Sex: Male
  Weight: 79.4 kg

DRUGS (4)
  1. ANTI-DIARRHEAL LIQUID [Suspect]
  2. BENZTROPINE 1 MG TAB [Suspect]
  3. ALPRAZOLAM [Concomitant]
  4. RISPERIDONE [Concomitant]

REACTIONS (2)
  - FAECALOMA [None]
  - INTESTINAL OBSTRUCTION [None]
